FAERS Safety Report 7777003 (Version 10)
Quarter: 2012Q4

REPORT INFORMATION
  Report Type: 
  Country: CA (occurrence: CA)
  Receive Date: 20110127
  Receipt Date: 20121205
  Transmission Date: 20130627
  Serious: Yes (Other)
  Sender: FDA-Public Use
  Company Number: CA-ROCHE-GNE312853

PATIENT
  Age: 42 Year
  Sex: Male

DRUGS (7)
  1. XOLAIR [Suspect]
     Indication: ASTHMA
     Dosage: 375 mg, Q2W
     Route: 058
     Dates: start: 20100826
  2. XOLAIR [Suspect]
     Route: 058
     Dates: start: 20120823
  3. XOLAIR [Suspect]
     Route: 065
     Dates: start: 20121018
  4. ADVAIR [Concomitant]
     Indication: PRODUCT USED FOR UNKNOWN INDICATION
     Dosage: UNK
     Route: 065
  5. VENTOLIN [Concomitant]
     Indication: PRODUCT USED FOR UNKNOWN INDICATION
  6. PREDNISONE [Concomitant]
     Indication: PRODUCT USED FOR UNKNOWN INDICATION
     Route: 065
     Dates: start: 20110504
  7. PREDNISONE [Concomitant]
     Route: 065
     Dates: start: 20110405

REACTIONS (5)
  - Pneumonia [Recovered/Resolved]
  - Pulmonary oedema [Unknown]
  - Respiratory tract infection [Unknown]
  - Blood pressure decreased [Unknown]
  - Respiratory disorder [Unknown]
